FAERS Safety Report 6083836-3 (Version None)
Quarter: 2009Q1

REPORT INFORMATION
  Report Type: 
  Country: None (occurrence: None)
  Receive Date: 20090219
  Receipt Date: 20090205
  Transmission Date: 20090719
  Serious: Yes (Other)
  Sender: FDA-Public Use
  Company Number: GR-ELI_LILLY_AND_COMPANY-GR200902001013

PATIENT
  Age: 68 Year
  Sex: Female

DRUGS (3)
  1. FORTEO [Suspect]
     Indication: OSTEOPOROSIS
     Dosage: 20 UG, DAILY (1/D)
     Route: 058
     Dates: start: 20080701
  2. FORTEO [Suspect]
     Dosage: UNK, UNKNOWN
  3. FORTEO [Suspect]
     Dosage: UNK, UNKNOWN
     Dates: start: 20090101, end: 20090101

REACTIONS (2)
  - CHILLS [None]
  - PYREXIA [None]
